FAERS Safety Report 21776163 (Version 1)
Quarter: 2022Q4

REPORT INFORMATION
  Report Type: Spontaneous
  Country: IT (occurrence: IT)
  Receive Date: 20221226
  Receipt Date: 20221226
  Transmission Date: 20230113
  Serious: Yes (Hospitalization, Other)
  Sender: FDA-Public Use
  Company Number: IT-BoehringerIngelheim-2022-BI-209018

PATIENT
  Age: 83 Year
  Sex: Male

DRUGS (1)
  1. PRADAXA [Suspect]
     Active Substance: DABIGATRAN ETEXILATE MESYLATE
     Indication: Atrial fibrillation

REACTIONS (5)
  - Intestinal obstruction [Unknown]
  - Appendiceal mucocoele [Unknown]
  - Faecaloma [Unknown]
  - Renal cyst [Unknown]
  - Ascites [Unknown]

NARRATIVE: CASE EVENT DATE: 20221219
